FAERS Safety Report 4436215-6 (Version None)
Quarter: 2004Q3

REPORT INFORMATION
  Report Type: 
  Country: None (occurrence: None)
  Receive Date: 20040830
  Receipt Date: 20040524
  Transmission Date: 20050211
  Serious: No
  Sender: FDA-Public Use
  Company Number: US-BRISTOL-MYERS SQUIBB COMPANY-12594610

PATIENT
  Age: 57 Year
  Sex: Male
  Weight: 82 kg

DRUGS (7)
  1. ERBITUX [Suspect]
     Indication: PANCREATIC CARCINOMA
     Dosage: LOADING DOSE: 400MG ON 26APR04
     Route: 042
     Dates: start: 20040501, end: 20040501
  2. BENADRYL [Concomitant]
     Indication: PREMEDICATION
     Route: 042
     Dates: start: 20040501, end: 20040501
  3. CISPLATIN [Concomitant]
  4. CELEBREX [Concomitant]
  5. COUMADIN [Concomitant]
  6. PERIDEX [Concomitant]
  7. ZOFRAN [Concomitant]

REACTIONS (4)
  - BLISTER [None]
  - DERMATITIS EXFOLIATIVE [None]
  - DRY SKIN [None]
  - SKIN CHAPPED [None]
